FAERS Safety Report 15626093 (Version 1)
Quarter: 2018Q4

REPORT INFORMATION
  Report Type: Spontaneous
  Country: US (occurrence: US)
  Receive Date: 20181112
  Receipt Date: 20181112
  Transmission Date: 20190205
  Serious: Yes (Other)
  Sender: FDA-Public Use
  Company Number: None

PATIENT
  Age: 19 Year
  Sex: Female
  Weight: 85.1 kg

DRUGS (8)
  1. ESTRADIOL CYPIONATE DEPO-ESTRADIOL INJECTION INTRAMUSCULA [Concomitant]
  2. IBUPROPION (WELLBUTRIN) [Concomitant]
  3. BOTOX [Concomitant]
     Active Substance: ONABOTULINUMTOXINA
  4. IBUPROFEN (ADVIL) [Concomitant]
  5. AIMOVIG [Suspect]
     Active Substance: ERENUMAB-AOOE
     Indication: MIGRAINE
     Dosage: ?          QUANTITY:70 MG MILLIGRAM(S);?
     Route: 058
     Dates: start: 20181108
  6. ERENUMAB-AAOOE (AIMOVIG AUTO-INJECTOR) [Concomitant]
  7. ALBUTEROL HFA [Concomitant]
     Active Substance: ALBUTEROL SULFATE
  8. RISPERIDONE (RISPERIDAL) [Concomitant]

REACTIONS (7)
  - Nausea [None]
  - Tremor [None]
  - Dizziness [None]
  - Migraine [None]
  - Asthenia [None]
  - Headache [None]
  - Vision blurred [None]

NARRATIVE: CASE EVENT DATE: 20181108
